FAERS Safety Report 21390064 (Version 2)
Quarter: 2022Q4

REPORT INFORMATION
  Report Type: Report from Study
  Country: CO (occurrence: CO)
  Receive Date: 20220929
  Receipt Date: 20221007
  Transmission Date: 20230113
  Serious: Yes (Other)
  Sender: FDA-Public Use
  Company Number: CO-UCBSA-2022056714

PATIENT
  Age: 52 Year
  Sex: Female

DRUGS (5)
  1. CERTOLIZUMAB PEGOL [Suspect]
     Active Substance: CERTOLIZUMAB PEGOL
     Indication: Rheumatoid arthritis
     Dosage: 400 MILLIGRAM, EV 4 WEEKS
     Route: 058
     Dates: start: 20220408
  2. LEFLUNOMIDE [Concomitant]
     Active Substance: LEFLUNOMIDE
     Indication: Rheumatoid arthritis
     Dosage: UNK, MILLIGRAM EV 4 WEEKS
     Route: 048
  3. METHOTREXATE [Concomitant]
     Active Substance: METHOTREXATE
     Indication: Rheumatoid arthritis
     Dosage: UNK, MILLIGRAM EV 4 WEEKS
     Route: 048
  4. FOLIC ACID [Concomitant]
     Active Substance: FOLIC ACID
     Indication: Rheumatoid arthritis
     Dosage: UNK, MILLIGRAM EV 4 WEEKS
     Route: 048
  5. BIO CALCIUM [CALCIUM] [Concomitant]
     Indication: Rheumatoid arthritis
     Dosage: UNK, MILLIGRAM EV 4 WEEKS
     Route: 048

REACTIONS (3)
  - Lung neoplasm [Recovering/Resolving]
  - Glucose tolerance impaired [Recovering/Resolving]
  - Investigation abnormal [Recovering/Resolving]

NARRATIVE: CASE EVENT DATE: 20220713
